FAERS Safety Report 14162708 (Version 1)
Quarter: 2017Q4

REPORT INFORMATION
  Report Type: Spontaneous
  Country: TR (occurrence: TR)
  Receive Date: 20171106
  Receipt Date: 20171106
  Transmission Date: 20180321
  Serious: Yes (Death)
  Sender: FDA-Public Use
  Company Number: TR-UCBSA-2017043807

PATIENT
  Age: 2 Year
  Sex: Male

DRUGS (6)
  1. PROPOFOL. [Concomitant]
     Active Substance: PROPOFOL
     Dosage: 2.5 MG/KG, HOURLY
  2. LEVETIRACETAM. [Suspect]
     Active Substance: LEVETIRACETAM
     Indication: OFF LABEL USE
  3. PROPOFOL. [Concomitant]
     Active Substance: PROPOFOL
     Indication: STATUS EPILEPTICUS
     Dosage: 1 MG/KG
     Route: 042
  4. MIDAZOLAM [Concomitant]
     Active Substance: MIDAZOLAM HYDROCHLORIDE
     Indication: STATUS EPILEPTICUS
     Dosage: 20 ?G/KG/MIN
  5. LEVETIRACETAM. [Suspect]
     Active Substance: LEVETIRACETAM
     Indication: STATUS EPILEPTICUS
     Dosage: UNKNOWN DOSE
  6. HYPERTONIC SALINE SOLUTION [Concomitant]
     Active Substance: SODIUM CHLORIDE
     Indication: OEDEMA
     Dosage: UNKNOWN DOSE
     Route: 042

REACTIONS (3)
  - Off label use [Unknown]
  - Death [Fatal]
  - Drug ineffective for unapproved indication [Unknown]
